FAERS Safety Report 10207338 (Version 1)
Quarter: 2014Q2

REPORT INFORMATION
  Report Type: Spontaneous
  Country: US (occurrence: US)
  Receive Date: 20140530
  Receipt Date: 20140530
  Transmission Date: 20141212
  Serious: No
  Sender: FDA-Public Use
  Company Number: US-GLAXOSMITHKLINE-A1035413A

PATIENT
  Sex: Male

DRUGS (9)
  1. VENTOLIN [Suspect]
     Indication: CHRONIC OBSTRUCTIVE PULMONARY DISEASE
     Dosage: 2PUFF THREE TIMES PER DAY
     Route: 055
     Dates: start: 20130724
  2. COMBIVENT [Concomitant]
  3. TUDORZA PRESSAIR [Concomitant]
  4. ALBUTEROL [Concomitant]
     Route: 055
  5. FUROSEMIDE [Concomitant]
  6. HYDRALAZINE [Concomitant]
  7. LOSARTAN POTASSIUM [Concomitant]
  8. ISOSORBIDE [Concomitant]
  9. PREDNISONE [Concomitant]

REACTIONS (2)
  - Wheezing [Not Recovered/Not Resolved]
  - Drug ineffective [Unknown]
